FAERS Safety Report 8131398-9 (Version None)
Quarter: 2012Q1

REPORT INFORMATION
  Report Type: 
  Country: None (occurrence: None)
  Receive Date: 20120103
  Receipt Date: 20110831
  Transmission Date: 20120608
  Serious: No
  Sender: FDA-Public Use
  Company Number: AE-2011-001228

PATIENT
  Age: 60 Year
  Sex: Male
  Weight: 82.5547 kg

DRUGS (8)
  1. INCIVEK [Suspect]
     Dosage: 2250 MG (750 MG,1 IN 8 HR),ORAL
     Route: 048
     Dates: start: 20110824
  2. LEXAPRO [Concomitant]
  3. ARTANE [Concomitant]
  4. RIBAVIRIN [Concomitant]
  5. ABILIFY [Concomitant]
  6. LAMICTAL [Concomitant]
  7. PEGASYS [Concomitant]
  8. SINGULAIR [Concomitant]

REACTIONS (1)
  - DIZZINESS POSTURAL [None]
